FAERS Safety Report 18092785 (Version 1)
Quarter: 2020Q3

REPORT INFORMATION
  Report Type: Spontaneous
  Country: US (occurrence: US)
  Receive Date: 20200730
  Receipt Date: 20200730
  Transmission Date: 20201103
  Serious: No
  Sender: FDA-Public Use
  Company Number: US-INCYTE CORPORATION-2020IN007126

PATIENT

DRUGS (1)
  1. JAKAFI [Suspect]
     Active Substance: RUXOLITINIB
     Indication: HYPERPARATHYROIDISM PRIMARY
     Dosage: 10 MILLIGRAM, BID
     Route: 048

REACTIONS (5)
  - Asthenia [Unknown]
  - Diarrhoea [Unknown]
  - Off label use [Unknown]
  - Blood creatinine increased [Unknown]
  - Hepatic enzyme increased [Unknown]
